FAERS Safety Report 14772878 (Version 2)
Quarter: 2018Q2

REPORT INFORMATION
  Report Type: Spontaneous
  Country: US (occurrence: US)
  Receive Date: 20180418
  Receipt Date: 20180514
  Transmission Date: 20180711
  Serious: No
  Sender: FDA-Public Use
  Company Number: US-PFIZER INC-2018157520

PATIENT
  Age: 68 Year
  Sex: Male

DRUGS (2)
  1. CARDIZEM [Suspect]
     Active Substance: DILTIAZEM HYDROCHLORIDE
     Dosage: UNK
  2. RANEXA [Suspect]
     Active Substance: RANOLAZINE
     Dosage: UNK

REACTIONS (1)
  - Drug hypersensitivity [Unknown]
